FAERS Safety Report 5480247-6 (Version None)
Quarter: 2007Q4

REPORT INFORMATION
  Report Type: 
  Country: None (occurrence: None)
  Receive Date: 20071009
  Receipt Date: 20070928
  Transmission Date: 20080405
  Serious: Yes (Other)
  Sender: FDA-Public Use
  Company Number: PHBS2007BR15529

PATIENT
  Age: 60 Year
  Sex: Male

DRUGS (1)
  1. RECLAST [Suspect]
     Dosage: 5MG/100ML
     Dates: start: 20070302

REACTIONS (1)
  - CALCIUM IONISED DECREASED [None]
